FAERS Safety Report 6857280-2 (Version None)
Quarter: 2010Q3

REPORT INFORMATION
  Report Type: 
  Country: None (occurrence: None)
  Receive Date: 20100719
  Receipt Date: 20100707
  Transmission Date: 20110219
  Serious: Yes (Other)
  Sender: FDA-Public Use
  Company Number: NO-PFIZER INC-2010085594

PATIENT
  Age: 50 Year
  Sex: Female

DRUGS (1)
  1. NEURONTIN [Suspect]
     Indication: POST HERPETIC NEURALGIA
     Dosage: 1200 MG, 1X/DAY
     Dates: start: 20100101

REACTIONS (3)
  - DRUG INEFFECTIVE [None]
  - HYPERHIDROSIS [None]
  - MENTAL IMPAIRMENT [None]
